FAERS Safety Report 8268311-X (Version None)
Quarter: 2012Q2

REPORT INFORMATION
  Report Type: 
  Country: None (occurrence: None)
  Receive Date: 20120409
  Receipt Date: 20120403
  Transmission Date: 20120825
  Serious: Yes (Death, Hospitalization)
  Sender: FDA-Public Use
  Company Number: PHHO2012US005387

PATIENT
  Sex: Female
  Weight: 117.91 kg

DRUGS (5)
  1. COUMADIN [Concomitant]
     Indication: ATRIAL FIBRILLATION
     Dosage: 2 MG, QD
     Route: 048
     Dates: start: 20070101, end: 20110301
  2. DIGOXIN [Concomitant]
     Indication: ARRHYTHMIA
     Dosage: 0.125 MG, QD
     Route: 048
     Dates: start: 20100801, end: 20110301
  3. SOTALOL HCL [Suspect]
     Indication: ARRHYTHMIA
     Dosage: 80 MG, QHS
     Route: 048
     Dates: start: 20070101, end: 20110301
  4. FUROSEMIDE [Concomitant]
     Indication: LYMPHOEDEMA
     Dosage: 10 MG, QD
     Route: 048
     Dates: start: 20090101, end: 20110301
  5. EXJADE [Suspect]
     Indication: IRON OVERLOAD
     Dosage: 2000 MG, UNK
     Route: 042
     Dates: start: 20100719

REACTIONS (2)
  - RIGHT VENTRICULAR DYSFUNCTION [None]
  - PULMONARY HYPERTENSION [None]
